FAERS Safety Report 6005484-3 (Version None)
Quarter: 2008Q4

REPORT INFORMATION
  Report Type: 
  Country: None (occurrence: None)
  Receive Date: 20081217
  Receipt Date: 20081205
  Transmission Date: 20090506
  Serious: Yes (Hospitalization)
  Sender: FDA-Public Use
  Company Number: BE-JNJFOC-20080700226

PATIENT
  Sex: Female
  Weight: 46 kg

DRUGS (11)
  1. REMICADE [Suspect]
     Indication: CROHN'S DISEASE
     Route: 042
  2. IMURAN [Concomitant]
     Indication: CROHN'S DISEASE
  3. TAVANIC [Concomitant]
     Indication: CROHN'S DISEASE
  4. OMEPRAZOLE [Concomitant]
     Indication: GASTROINTESTINAL DISORDER THERAPY
  5. MOTILIUM [Concomitant]
     Indication: ABDOMINAL PAIN UPPER
  6. MOTILIUM [Concomitant]
     Indication: GASTROINTESTINAL DISORDER THERAPY
  7. REMERON [Concomitant]
  8. REMERON [Concomitant]
     Indication: DEPRESSION
  9. ZOLPIDEM [Concomitant]
  10. ZOLPIDEM [Concomitant]
     Indication: INSOMNIA
  11. TRAZOLAN [Concomitant]
     Indication: DEPRESSION

REACTIONS (2)
  - BILE DUCT STONE [None]
  - CHOLANGITIS [None]
